FAERS Safety Report 5601281-9 (Version None)
Quarter: 2008Q1

REPORT INFORMATION
  Report Type: 
  Country: None (occurrence: None)
  Receive Date: 20080124
  Receipt Date: 20080122
  Transmission Date: 20080703
  Serious: Yes (Hospitalization)
  Sender: FDA-Public Use
  Company Number: A0705225A

PATIENT
  Sex: Male
  Weight: 3.7 kg

DRUGS (2)
  1. LAMOTRIGINE [Suspect]
  2. FOLIC ACID [Concomitant]

REACTIONS (2)
  - DRUG EXPOSURE DURING PREGNANCY [None]
  - TRANSIENT TACHYPNOEA OF THE NEWBORN [None]
